FAERS Safety Report 8498484 (Version 4)
Quarter: 2013Q2

REPORT INFORMATION
  Report Type: Spontaneous
  Country: US (occurrence: US)
  Receive Date: 20120406
  Receipt Date: 20130618
  Transmission Date: 20140414
  Serious: Yes (Hospitalization, Other)
  Sender: FDA-Public Use
  Company Number: US-ASTRAZENECA-2012SE21564

PATIENT
  Age: 62 Year
  Sex: Female
  Weight: 90.7 kg

DRUGS (25)
  1. NEXIUM [Suspect]
     Indication: GASTROOESOPHAGEAL REFLUX DISEASE
     Dosage: TWICE A DAY
     Route: 048
  2. NEXIUM [Suspect]
     Indication: GASTROOESOPHAGEAL REFLUX DISEASE
     Route: 048
     Dates: end: 20130607
  3. ZOMIG-ZMT [Suspect]
     Route: 048
  4. LISINOPRIL [Suspect]
     Indication: HYPERTENSION
     Route: 065
     Dates: end: 2011
  5. TRIMTEX [Concomitant]
     Indication: NERVE INJURY
     Route: 048
     Dates: start: 1994
  6. BACTRIM [Concomitant]
     Indication: CYSTITIS
     Route: 048
     Dates: start: 201301
  7. PYRIDIUM [Concomitant]
     Indication: CYSTITIS
     Route: 048
     Dates: start: 201301
  8. LORATAB [Concomitant]
     Route: 048
     Dates: start: 1993
  9. BACLOFEN [Concomitant]
     Indication: SPINAL CORD INJURY
     Route: 048
     Dates: start: 1993
  10. SKELAXIN [Concomitant]
     Indication: MUSCLE SPASMS
     Route: 048
     Dates: start: 1998
  11. ATARAX [Concomitant]
     Indication: URTICARIA
     Route: 048
     Dates: start: 1993
  12. ZOFRAN [Concomitant]
     Indication: ABDOMINAL DISCOMFORT
     Route: 048
     Dates: start: 1993
  13. ELAVIL [Concomitant]
     Indication: BLADDER SPASM
     Route: 048
     Dates: start: 1993
  14. ELAVIL [Concomitant]
     Indication: EYE PAIN
     Route: 048
     Dates: start: 1993
  15. ELAVIL [Concomitant]
     Indication: MUSCLE DISORDER
     Route: 048
     Dates: start: 1993
  16. LUNESTA [Concomitant]
     Indication: SLEEP DISORDER
     Route: 048
     Dates: start: 1993
  17. ASPIRIN [Concomitant]
     Indication: CARDIAC DISORDER
     Route: 048
     Dates: start: 201301
  18. COMBIVENT [Concomitant]
     Indication: CHRONIC OBSTRUCTIVE PULMONARY DISEASE
     Dosage: TID
     Route: 055
     Dates: start: 1993
  19. VENTOLIN [Concomitant]
     Indication: CHRONIC OBSTRUCTIVE PULMONARY DISEASE
     Dosage: QID
     Route: 055
     Dates: start: 1993
  20. ADVAIR [Concomitant]
     Indication: CHRONIC OBSTRUCTIVE PULMONARY DISEASE
     Route: 055
     Dates: start: 1993
  21. ALBUTEROL NEBULIZER [Concomitant]
     Indication: CHRONIC OBSTRUCTIVE PULMONARY DISEASE
     Dosage: QID
     Route: 055
     Dates: start: 1993
  22. KLONOPIN [Concomitant]
     Route: 048
     Dates: start: 2012
  23. LEXAPRO [Concomitant]
     Indication: DEPRESSION
     Route: 048
     Dates: start: 2012
  24. ZOLOFT [Concomitant]
     Indication: DEPRESSION
     Route: 048
     Dates: start: 2012
  25. LEVOTYROXINE [Concomitant]
     Indication: THYROID DISORDER
     Route: 048
     Dates: start: 1998

REACTIONS (22)
  - Hip fracture [Unknown]
  - Myocardial infarction [Unknown]
  - Fall [Unknown]
  - Nerve injury [Unknown]
  - Rib fracture [Unknown]
  - Musculoskeletal discomfort [Unknown]
  - Cardiac failure [Unknown]
  - Fracture [Not Recovered/Not Resolved]
  - Migraine [Unknown]
  - Gastric disorder [Unknown]
  - Chronic obstructive pulmonary disease [Unknown]
  - Gastrooesophageal reflux disease [Unknown]
  - Dyspepsia [Unknown]
  - Weight increased [Unknown]
  - Fibromyalgia [Unknown]
  - Large intestine polyp [Unknown]
  - Hiatus hernia [Unknown]
  - Cystitis [Unknown]
  - Thyroid disorder [Unknown]
  - Alopecia [Unknown]
  - Drug dose omission [Unknown]
  - Off label use [Unknown]
